FAERS Safety Report 10972628 (Version 2)
Quarter: 2015Q2

REPORT INFORMATION
  Report Type: Spontaneous
  Country: US (occurrence: US)
  Receive Date: 20150331
  Receipt Date: 20150525
  Transmission Date: 20150821
  Serious: No
  Sender: FDA-Public Use
  Company Number: US-JNJFOC-20140202555

PATIENT
  Sex: Female

DRUGS (2)
  1. RISPERDAL [Suspect]
     Active Substance: RISPERIDONE
     Indication: PRODUCT USED FOR UNKNOWN INDICATION
     Route: 065
     Dates: end: 201311
  2. RISPERDAL [Suspect]
     Active Substance: RISPERIDONE
     Indication: PRODUCT USED FOR UNKNOWN INDICATION
     Route: 065
     Dates: start: 20100111, end: 20120816

REACTIONS (5)
  - Breast enlargement [Not Recovered/Not Resolved]
  - Breast pain [Unknown]
  - Breast tenderness [Unknown]
  - Breast swelling [Unknown]
  - Breast discharge [Unknown]

NARRATIVE: CASE EVENT DATE: 20100115
